FAERS Safety Report 7183145-5 (Version None)
Quarter: 2010Q4

REPORT INFORMATION
  Report Type: 
  Country: None (occurrence: None)
  Receive Date: 20101222
  Receipt Date: 20100107
  Transmission Date: 20110411
  Serious: No
  Sender: FDA-Public Use
  Company Number: US-PFIZER INC-2010008088

PATIENT
  Sex: Female
  Weight: 76.19 kg

DRUGS (3)
  1. HALCION [Suspect]
     Indication: DENTAL OPERATION
     Route: 048
     Dates: start: 20100105
  2. PRILOSEC [Concomitant]
     Indication: GASTRIC DISORDER
     Route: 048
  3. SUDAFED 12 HOUR [Concomitant]
     Indication: SEASONAL ALLERGY
     Route: 048

REACTIONS (2)
  - AGITATION [None]
  - RESTLESSNESS [None]
